FAERS Safety Report 16841506 (Version 1)
Quarter: 2019Q3

REPORT INFORMATION
  Report Type: Spontaneous
  Country: FR (occurrence: FR)
  Receive Date: 20190923
  Receipt Date: 20190923
  Transmission Date: 20191005
  Serious: Yes (Other)
  Sender: FDA-Public Use
  Company Number: FR-ABBVIE-19P-056-2927083-00

PATIENT
  Age: 34 Year
  Sex: Male

DRUGS (1)
  1. SEVOFLURANE. [Suspect]
     Active Substance: SEVOFLURANE
     Indication: SEDATION
     Dosage: MAINTAINED BETWEEN 0.5 AND 1.3. TOTAL 25 MAC HOURS
     Route: 055

REACTIONS (2)
  - Renal failure [Recovered/Resolved]
  - Fluoride increased [Recovered/Resolved]
